FAERS Safety Report 25640425 (Version 2)
Quarter: 2025Q3

REPORT INFORMATION
  Report Type: Spontaneous
  Country: CA (occurrence: CA)
  Receive Date: 20250804
  Receipt Date: 20250825
  Transmission Date: 20251021
  Serious: Yes (Hospitalization, Other)
  Sender: BAUSCH AND LOMB
  Company Number: CA-BAUSCH-BH-2025-015699

PATIENT
  Age: 64 Year
  Sex: Male

DRUGS (1)
  1. RIFAXIMIN [Suspect]
     Active Substance: RIFAXIMIN
     Indication: Hepatic encephalopathy
     Route: 048
     Dates: start: 20250305

REACTIONS (3)
  - Paracentesis [Unknown]
  - Post procedural cellulitis [Unknown]
  - Ulcer [Unknown]

NARRATIVE: CASE EVENT DATE: 20250701
